FAERS Safety Report 6716803-4 (Version None)
Quarter: 2010Q2

REPORT INFORMATION
  Report Type: 
  Country: None (occurrence: None)
  Receive Date: 20100510
  Receipt Date: 20100423
  Transmission Date: 20101027
  Serious: Yes (Other)
  Sender: FDA-Public Use
  Company Number: US-BAYER-200934823NA

PATIENT
  Age: 20 Year
  Sex: Female

DRUGS (3)
  1. YASMIN [Suspect]
     Indication: CONTRACEPTION
     Dosage: 1 TAB/DAY
     Route: 048
     Dates: start: 20060411, end: 20070917
  2. EXCEDRIN (MIGRAINE) [Concomitant]
  3. SULFAMETHOXAZOLE AND TRIMETHOPRIM DOUBLE STRENGTH [Concomitant]

REACTIONS (6)
  - ARTHRALGIA [None]
  - DEEP VEIN THROMBOSIS [None]
  - GROIN PAIN [None]
  - PAIN [None]
  - PAIN IN EXTREMITY [None]
  - PRESYNCOPE [None]
